FAERS Safety Report 4836887-8 (Version None)
Quarter: 2005Q4

REPORT INFORMATION
  Report Type: 
  Country: None (occurrence: None)
  Receive Date: 20051123
  Receipt Date: 20051114
  Transmission Date: 20060501
  Serious: Yes (Other)
  Sender: FDA-Public Use
  Company Number: US-MERCK-0511USA02272

PATIENT
  Age: 68 Year
  Sex: Male
  Weight: 80 kg

DRUGS (8)
  1. VIOXX [Suspect]
     Indication: ARTHRITIS
     Route: 048
  2. PREVACID [Concomitant]
     Route: 065
  3. LASIX [Concomitant]
     Route: 065
  4. MICROX [Concomitant]
     Route: 065
  5. PAXIL [Concomitant]
     Route: 065
  6. WARFARIN [Concomitant]
     Route: 065
  7. NEXIUM [Concomitant]
     Route: 065
  8. PLAVIX [Concomitant]
     Route: 065

REACTIONS (1)
  - CEREBROVASCULAR ACCIDENT [None]
